FAERS Safety Report 7658281-7 (Version None)
Quarter: 2011Q3

REPORT INFORMATION
  Report Type: 
  Country: None (occurrence: None)
  Receive Date: 20110805
  Receipt Date: 20110321
  Transmission Date: 20111222
  Serious: Yes (Hospitalization, Other)
  Sender: FDA-Public Use
  Company Number: US-BAYER-2010-001442

PATIENT
  Age: 36 Year
  Sex: Female
  Weight: 79.365 kg

DRUGS (7)
  1. YASMIN [Suspect]
     Indication: ENDOMETRIOSIS
  2. YASMIN [Suspect]
     Indication: PREMENSTRUAL SYNDROME
     Dates: start: 20081001
  3. YAZ [Suspect]
     Indication: ENDOMETRIOSIS
  4. LIDODERM [Concomitant]
     Dosage: UNK UNK, PRN
  5. ROBAXIN [Concomitant]
     Dosage: UNK UNK, PRN
  6. YAZ [Suspect]
     Indication: PREMENSTRUAL SYNDROME
     Dates: start: 20090910
  7. TRAMADOL HCL [Concomitant]
     Dosage: UNK UNK, PRN

REACTIONS (1)
  - DEEP VEIN THROMBOSIS [None]
